FAERS Safety Report 6872624-3 (Version None)
Quarter: 2010Q3

REPORT INFORMATION
  Report Type: 
  Country: None (occurrence: None)
  Receive Date: 20100723
  Receipt Date: 20081020
  Transmission Date: 20110219
  Serious: Yes (Other)
  Sender: FDA-Public Use
  Company Number: US-PFIZER INC-2008086764

PATIENT
  Sex: Female
  Weight: 59 kg

DRUGS (5)
  1. CHANTIX [Suspect]
     Indication: SMOKING CESSATION THERAPY
     Route: 048
     Dates: start: 20080401, end: 20080801
  2. SYNTHROID [Concomitant]
     Indication: HYPOTHYROIDISM
  3. ANALGESICS [Concomitant]
     Indication: ARTHRITIS
  4. CORTICOSTEROIDS [Concomitant]
     Indication: HERPES SIMPLEX
  5. ASPIRIN [Concomitant]

REACTIONS (6)
  - ADVERSE REACTION [None]
  - AGGRESSION [None]
  - BLOOD CHOLESTEROL INCREASED [None]
  - HOSTILITY [None]
  - ILL-DEFINED DISORDER [None]
  - IRRITABILITY [None]
